FAERS Safety Report 24625425 (Version 1)
Quarter: 2024Q4

REPORT INFORMATION
  Report Type: Spontaneous
  Country: US (occurrence: None)
  Receive Date: 20241115
  Receipt Date: 20241115
  Transmission Date: 20250114
  Serious: No
  Sender: Public
  Company Number: None

PATIENT
  Age: 32 Year
  Sex: Male
  Weight: 109 kg

DRUGS (1)
  1. SERTRALINE HYDROCHLORIDE [Suspect]
     Active Substance: SERTRALINE HYDROCHLORIDE
     Indication: Depression
     Dosage: 1.00 MG DAILY ORAL?
     Route: 048
     Dates: start: 20231025, end: 20240507

REACTIONS (2)
  - Suicidal ideation [None]
  - Intentional overdose [None]

NARRATIVE: CASE EVENT DATE: 20240507
